FAERS Safety Report 7302046-2 (Version None)
Quarter: 2011Q1

REPORT INFORMATION
  Report Type: 
  Country: None (occurrence: None)
  Receive Date: 20110218
  Receipt Date: 20110214
  Transmission Date: 20110831
  Serious: Yes (Hospitalization, Other)
  Sender: FDA-Public Use
  Company Number: IT-GENZYME-CAMP-1001314

PATIENT
  Sex: Male
  Weight: 70 kg

DRUGS (44)
  1. CAMPATH [Suspect]
     Dosage: 10 MG ON DAY 0
     Route: 058
  2. CAMPATH [Suspect]
     Dosage: 10 MG ON DAY 0
     Route: 058
     Dates: start: 20100917, end: 20100917
  3. CAMPATH [Suspect]
     Dosage: 10 MG ON DAY 0
     Route: 058
     Dates: start: 20101013, end: 20101013
  4. CYCLOPHOSPHAMIDE [Suspect]
     Dosage: 1350 MG, UNK
     Route: 065
  5. CYCLOPHOSPHAMIDE [Suspect]
     Dosage: 1350 MG, UNK
     Route: 065
  6. VINCRISTINE [Suspect]
     Dosage: 2 MG, UNK
     Route: 065
  7. PREDNISONE TAB [Suspect]
     Dosage: 350 MG, UNK
     Route: 065
  8. ARANESP [Concomitant]
     Indication: PRODUCT USED FOR UNKNOWN INDICATION
     Dosage: UNK UNK, UNK
     Route: 065
  9. CAMPATH [Suspect]
     Indication: PERIPHERAL T-CELL LYMPHOMA UNSPECIFIED
     Dosage: 3 MG ON DAY -1
     Route: 042
     Dates: start: 20100329, end: 20100329
  10. CAMPATH [Suspect]
     Dosage: 10 MG ON DAY 0
     Route: 058
  11. CYCLOPHOSPHAMIDE [Suspect]
     Dosage: 1350 MG, UNK
     Route: 065
  12. CYCLOPHOSPHAMIDE [Suspect]
     Dosage: 1350 MG, UNK
     Route: 065
  13. CYCLOPHOSPHAMIDE [Suspect]
     Dosage: 1350 MG, UNK
     Route: 065
  14. VINCRISTINE [Suspect]
     Indication: PERIPHERAL T-CELL LYMPHOMA UNSPECIFIED
     Dosage: 2 MG, UNK
     Route: 065
  15. VINCRISTINE [Suspect]
     Dosage: 2 MG, UNK
     Route: 065
  16. VINCRISTINE [Suspect]
     Dosage: 2 MG, UNK
     Route: 065
  17. PREDNISONE TAB [Suspect]
     Indication: PERIPHERAL T-CELL LYMPHOMA UNSPECIFIED
     Dosage: 350 MG, UNK
     Route: 065
  18. PREDNISONE TAB [Suspect]
     Dosage: 350 MG, UNK
     Route: 065
  19. CAMPATH [Suspect]
     Dosage: 10 MG ON DAY 0
     Route: 058
  20. CYCLOPHOSPHAMIDE [Suspect]
     Dosage: 1350 MG, UNK
     Route: 065
  21. DOXORUBICIN [Suspect]
     Dosage: 90 MG, UNK
     Route: 065
  22. DOXORUBICIN [Suspect]
     Dosage: 90 MG, UNK
     Route: 065
  23. PREDNISONE TAB [Suspect]
     Dosage: 350 MG, UNK
     Route: 065
  24. ZEFFIX [Concomitant]
     Indication: PRODUCT USED FOR UNKNOWN INDICATION
     Dosage: UNK UNK, UNK
     Route: 065
  25. CAMPATH [Suspect]
     Dosage: 10 MG ON DAY 0
     Route: 042
  26. CAMPATH [Suspect]
     Dosage: 10 MG ON DAY 0
     Route: 058
  27. DOXORUBICIN [Suspect]
     Dosage: 90 MG, UNK
     Route: 065
  28. DOXORUBICIN [Suspect]
     Dosage: 90 MG, UNK
     Route: 065
  29. VINCRISTINE [Suspect]
     Dosage: 2 MG, UNK
     Route: 065
  30. PREDNISONE TAB [Suspect]
     Dosage: 350 MG, UNK
     Route: 065
  31. CYCLOPHOSPHAMIDE [Suspect]
     Dosage: 1350 MG, UNK
     Route: 065
  32. DOXORUBICIN [Suspect]
     Indication: PERIPHERAL T-CELL LYMPHOMA UNSPECIFIED
     Dosage: 90 MG, UNK
     Route: 065
  33. DOXORUBICIN [Suspect]
     Dosage: 90 MG, UNK
     Route: 065
  34. DOXORUBICIN [Suspect]
     Dosage: 90 MG, UNK
     Route: 065
  35. DOXORUBICIN [Suspect]
     Dosage: 90 MG, UNK
     Route: 065
  36. VINCRISTINE [Suspect]
     Dosage: 2 MG, UNK
     Route: 065
  37. VINCRISTINE [Suspect]
     Dosage: 2 MG, UNK
     Route: 065
  38. PREDNISONE TAB [Suspect]
     Dosage: 350 MG, UNK
     Route: 065
  39. CAMPATH [Suspect]
     Dosage: 10 MG ON DAY 0
     Route: 058
  40. CAMPATH [Suspect]
     Dosage: 10 MG ON DAY 0
     Route: 058
  41. CYCLOPHOSPHAMIDE [Suspect]
     Indication: PERIPHERAL T-CELL LYMPHOMA UNSPECIFIED
     Dosage: 1350 MG, UNK
     Route: 065
  42. VINCRISTINE [Suspect]
     Dosage: 2 MG, UNK
     Route: 065
  43. PREDNISONE TAB [Suspect]
     Dosage: 350 MG, UNK
     Route: 065
  44. PREDNISONE TAB [Suspect]
     Dosage: 350 MG, UNK
     Route: 065

REACTIONS (3)
  - ACUTE RESPIRATORY DISTRESS SYNDROME [None]
  - RENAL FAILURE ACUTE [None]
  - ATRIAL FIBRILLATION [None]
